FAERS Safety Report 5946449-7 (Version None)
Quarter: 2008Q4

REPORT INFORMATION
  Report Type: 
  Country: None (occurrence: None)
  Receive Date: 20081106
  Receipt Date: 20081106
  Transmission Date: 20090506
  Serious: Yes (Other)
  Sender: FDA-Public Use
  Company Number: None

PATIENT
  Age: 53 Year
  Sex: Male
  Weight: 117.9352 kg

DRUGS (2)
  1. ADVAIR DISKUS 250/50 [Suspect]
     Indication: ASTHMA
     Dosage: 250/10 TWICE / DAY INHAL
     Route: 055
     Dates: start: 20081021, end: 20081105
  2. ADVAIR DISKUS 250/50 [Suspect]
     Indication: CHRONIC OBSTRUCTIVE PULMONARY DISEASE
     Dosage: 250/10 TWICE / DAY INHAL
     Route: 055
     Dates: start: 20081021, end: 20081105

REACTIONS (5)
  - CONDITION AGGRAVATED [None]
  - FATIGUE [None]
  - INFLUENZA LIKE ILLNESS [None]
  - SLEEP APNOEA SYNDROME [None]
  - SOMNOLENCE [None]
